FAERS Safety Report 20626387 (Version 1)
Quarter: 2022Q1

REPORT INFORMATION
  Report Type: Spontaneous
  Country: US (occurrence: US)
  Receive Date: 20220323
  Receipt Date: 20220323
  Transmission Date: 20220424
  Serious: Yes (Hospitalization, Other)
  Sender: FDA-Public Use
  Company Number: US-AMGEN-USASP2022046240

PATIENT

DRUGS (1)
  1. FILGRASTIM [Suspect]
     Active Substance: FILGRASTIM
     Indication: Prophylaxis
     Dosage: UNK, AFTER CHEMO
     Route: 065

REACTIONS (12)
  - Acute respiratory distress syndrome [Unknown]
  - Capillary leak syndrome [Unknown]
  - Febrile neutropenia [Unknown]
  - Neutropenia [Unknown]
  - Infection [Unknown]
  - Splenic rupture [Unknown]
  - Drug hypersensitivity [Unknown]
  - Thrombocytopenia [Unknown]
  - Leukocytosis [Unknown]
  - Cutaneous vasculitis [Unknown]
  - Bone pain [Unknown]
  - Myalgia [Unknown]
